FAERS Safety Report 12355452 (Version 1)
Quarter: 2016Q2

REPORT INFORMATION
  Report Type: Report from Study
  Country: JP (occurrence: JP)
  Receive Date: 20160511
  Receipt Date: 20160511
  Transmission Date: 20160815
  Serious: Yes (Life-Threatening, Hospitalization, Disabling)
  Sender: FDA-Public Use
  Company Number: JP-CELGENEUS-JPN-2015071347

PATIENT
  Age: 78 Year
  Sex: Male

DRUGS (34)
  1. POMALYST [Suspect]
     Active Substance: POMALIDOMIDE
     Route: 048
     Dates: start: 20150727, end: 20150809
  2. CERCINE [Concomitant]
     Active Substance: DIAZEPAM
     Indication: PLASMA CELL MYELOMA RECURRENT
     Route: 041
  3. HEPARIN SODIUM. [Concomitant]
     Active Substance: HEPARIN SODIUM
     Indication: PLASMA CELL MYELOMA RECURRENT
     Route: 041
  4. MINERIC [Concomitant]
     Indication: PLASMA CELL MYELOMA RECURRENT
     Route: 041
  5. OXYNORM [Concomitant]
     Active Substance: OXYCODONE HYDROCHLORIDE
     Indication: PLASMA CELL MYELOMA RECURRENT
     Dosage: 150 MILLIGRAM
     Route: 048
  6. REVLIMID [Suspect]
     Active Substance: LENALIDOMIDE
     Indication: PLASMA CELL MYELOMA RECURRENT
     Route: 048
     Dates: start: 20140724, end: 20150618
  7. HICALIQ RF [Concomitant]
     Active Substance: CALCIUM GLUCONATE\DEXTROSE\MAGNESIUM SULFATE\POTASSIUM ACETATE\POTASSIUM PHOSPHATE, DIBASIC\ZINC SULFATE
     Indication: PLASMA CELL MYELOMA RECURRENT
     Route: 041
  8. KIDMIN [Concomitant]
     Active Substance: AMINO ACIDS\ELECTROLYTES NOS
     Indication: PLASMA CELL MYELOMA RECURRENT
     Route: 041
  9. TERICOPLANIN [Concomitant]
     Indication: PLASMA CELL MYELOMA RECURRENT
     Route: 041
  10. MOHRUS TAPE [Concomitant]
     Active Substance: KETOPROFEN
     Indication: PROPHYLAXIS
     Dosage: 1 DOSAGE FORMS
     Route: 062
  11. LENADEX [Suspect]
     Active Substance: DEXAMETHASONE ACETATE
     Route: 048
     Dates: start: 20150727, end: 20150809
  12. FEBURIC [Concomitant]
     Active Substance: FEBUXOSTAT
     Indication: PROPHYLAXIS
     Route: 048
  13. LYRICA [Concomitant]
     Active Substance: PREGABALIN
     Indication: PROPHYLAXIS
     Dosage: .2 MILLIGRAM
     Route: 048
  14. MAGMITT [Concomitant]
     Active Substance: MAGNESIUM OXIDE
     Indication: PROPHYLAXIS
     Dosage: 10 MILLIGRAM
     Route: 048
  15. LENADEX [Suspect]
     Active Substance: DEXAMETHASONE ACETATE
     Indication: PLASMA CELL MYELOMA RECURRENT
     Dosage: 200 MILLIGRAM
     Route: 065
     Dates: start: 20140724, end: 20150618
  16. NAFAMOSTAT [Concomitant]
     Active Substance: NAFAMOSTAT
     Indication: PLASMA CELL MYELOMA RECURRENT
     Route: 041
  17. TRYPTANOL [Concomitant]
     Active Substance: AMITRIPTYLINE
     Indication: PROPHYLAXIS
     Dosage: 150 MILLIGRAM
     Route: 065
  18. POMALYST [Suspect]
     Active Substance: POMALIDOMIDE
     Indication: PLASMA CELL MYELOMA RECURRENT
     Route: 048
     Dates: start: 20150625, end: 20150630
  19. KAYTWO N [Concomitant]
     Active Substance: MENATETRENONE
     Indication: PLASMA CELL MYELOMA RECURRENT
     Route: 041
  20. JANUVIA [Concomitant]
     Active Substance: SITAGLIPTIN PHOSPHATE
     Indication: PROPHYLAXIS
     Route: 048
  21. PROMAC [Concomitant]
     Active Substance: NITROFURANTOIN
     Indication: PROPHYLAXIS
     Dosage: 15 MILLIGRAM
     Route: 048
  22. CELECOX [Concomitant]
     Active Substance: CELECOXIB
     Indication: PROPHYLAXIS
     Dosage: 50 MILLIGRAM
     Route: 065
  23. TAMSULOSIN HYDROCHLORIDE. [Concomitant]
     Active Substance: TAMSULOSIN HYDROCHLORIDE
     Indication: PROPHYLAXIS
     Route: 048
  24. OXYCONTIN [Concomitant]
     Active Substance: OXYCODONE HYDROCHLORIDE
     Indication: PLASMA CELL MYELOMA RECURRENT
     Route: 048
  25. LENADEX [Suspect]
     Active Substance: DEXAMETHASONE ACETATE
     Route: 048
     Dates: start: 20150625, end: 20150630
  26. HUMULIN R [Concomitant]
     Active Substance: INSULIN HUMAN
     Indication: PLASMA CELL MYELOMA RECURRENT
     Route: 041
  27. VITAJECT [Concomitant]
     Active Substance: CYANOCOBALAMIN\PYRIDOXAMINE HYDROCHLORIDE\THIAMINE HYDROCHLORIDE
     Indication: PLASMA CELL MYELOMA RECURRENT
     Route: 041
  28. OMEPRAL [Concomitant]
     Active Substance: OMEPRAZOLE
     Indication: PLASMA CELL MYELOMA RECURRENT
     Route: 041
  29. BACTRAMIN [Concomitant]
     Active Substance: SULFAMETHOXAZOLE\TRIMETHOPRIM
     Indication: PROPHYLAXIS
     Route: 048
  30. TSUMURA SEISHOEKKITO EXTRACT [Concomitant]
     Indication: PLASMA CELL MYELOMA RECURRENT
     Dosage: 660 MILLIGRAM
     Route: 065
  31. FUROSEMIDE. [Concomitant]
     Active Substance: FUROSEMIDE
     Indication: PLASMA CELL MYELOMA RECURRENT
     Route: 041
  32. PHYSIO 140 [Concomitant]
     Indication: PLASMA CELL MYELOMA RECURRENT
     Route: 041
  33. SOLDEM 1 [Concomitant]
     Active Substance: DEXTROSE\SODIUM CHLORIDE\SODIUM LACTATE
     Indication: PLASMA CELL MYELOMA RECURRENT
     Route: 041
  34. LANSOPRAZOLE. [Concomitant]
     Active Substance: LANSOPRAZOLE
     Indication: PROPHYLAXIS
     Route: 048

REACTIONS (7)
  - Pancytopenia [Not Recovered/Not Resolved]
  - Hypoalbuminaemia [Not Recovered/Not Resolved]
  - Renal failure [Not Recovered/Not Resolved]
  - Sepsis [Recovering/Resolving]
  - Pneumonia [Recovering/Resolving]
  - Hyperglycaemia [Recovering/Resolving]
  - Urinary tract infection [Recovering/Resolving]

NARRATIVE: CASE EVENT DATE: 20150701
